FAERS Safety Report 22041086 (Version 1)
Quarter: 2023Q1

REPORT INFORMATION
  Report Type: Spontaneous
  Country: US (occurrence: None)
  Receive Date: 20230226
  Receipt Date: 20230226
  Transmission Date: 20230417
  Serious: Yes (Life-Threatening, Hospitalization, Disabling, Other)
  Sender: FDA-Public Use
  Company Number: None

PATIENT
  Age: 41 Year
  Sex: Female
  Weight: 56.25 kg

DRUGS (1)
  1. HUMIRA [Suspect]
     Active Substance: ADALIMUMAB
     Indication: Psoriatic arthropathy

REACTIONS (7)
  - Vasculitis [None]
  - Lung disorder [None]
  - Muscular weakness [None]
  - Muscular weakness [None]
  - Anxiety [None]
  - Nerve injury [None]
  - Pain [None]

NARRATIVE: CASE EVENT DATE: 20220118
